FAERS Safety Report 4372264-4 (Version None)
Quarter: 2004Q2

REPORT INFORMATION
  Report Type: 
  Country: None (occurrence: None)
  Receive Date: 20040601
  Receipt Date: 20040601
  Transmission Date: 20050107
  Serious: Yes (Hospitalization)
  Sender: FDA-Public Use
  Company Number: None

PATIENT
  Age: 70 Year
  Sex: Male
  Weight: 79.4 kg

DRUGS (11)
  1. INTEGRILIN [Suspect]
     Indication: ANTIPLATELET THERAPY
     Dosage: 2(7.3 ML BOLUSES), 13ML/HR IV
     Route: 042
     Dates: start: 20040512, end: 20040513
  2. HEPARIN [Suspect]
     Indication: ANTICOAGULANT THERAPY
     Dosage: 3975 UNITS IV
     Route: 042
     Dates: start: 20040512
  3. LIDOCAINE [Concomitant]
  4. MIDAZOLAM HCL [Concomitant]
  5. FENTANYL [Concomitant]
  6. NITROGLYCERIN [Concomitant]
  7. VERAPAMIL [Concomitant]
  8. CEFAZOLIN [Concomitant]
  9. ASPIRIN [Concomitant]
  10. PEPCID [Concomitant]
  11. CLOPIDOGREL BISULFATE [Concomitant]

REACTIONS (1)
  - CATHETER SITE HAEMORRHAGE [None]
